FAERS Safety Report 5142148-2 (Version None)
Quarter: 2006Q4

REPORT INFORMATION
  Report Type: 
  Country: None (occurrence: None)
  Receive Date: 20061102
  Receipt Date: 20061017
  Transmission Date: 20070319
  Serious: Yes (Hospitalization)
  Sender: FDA-Public Use
  Company Number: HQWYE274118OCT06

PATIENT
  Sex: Female

DRUGS (3)
  1. ENBREL [Suspect]
     Indication: RHEUMATOID ARTHRITIS
     Route: 058
     Dates: start: 20060206, end: 20060914
  2. MIZORIBINE [Concomitant]
     Dosage: UNKNOWN
     Route: 048
  3. METHOTREXATE [Concomitant]
     Dosage: UNKNOWN
     Route: 048

REACTIONS (3)
  - FALL [None]
  - FEMORAL NECK FRACTURE [None]
  - INJURY [None]
